FAERS Safety Report 9541999 (Version 2)
Quarter: 2013Q4

REPORT INFORMATION
  Report Type: Spontaneous
  Country: US (occurrence: US)
  Receive Date: 20130923
  Receipt Date: 20131004
  Transmission Date: 20140711
  Serious: Yes (Other)
  Sender: FDA-Public Use
  Company Number: US-BAYER-2013-112311

PATIENT
  Age: 87 Year
  Sex: Male

DRUGS (10)
  1. XARELTO [Suspect]
     Indication: PRODUCT USED FOR UNKNOWN INDICATION
     Dosage: 20 MG, QD
     Route: 048
     Dates: start: 20130701, end: 20130801
  2. ACETYLSALICYLIC ACID({=100 MG) [Interacting]
     Indication: PRODUCT USED FOR UNKNOWN INDICATION
     Dosage: 81 MG, BID
     Route: 065
  3. DIGOXIN [Concomitant]
     Route: 065
  4. DIGOXIN [Concomitant]
  5. MESALAZINE [Concomitant]
     Route: 065
  6. MESALAZINE [Concomitant]
  7. AMBIEN [Concomitant]
     Route: 065
  8. AMBIEN [Concomitant]
  9. METOPROLOL [Concomitant]
     Route: 065
  10. METOPROLOL [Concomitant]

REACTIONS (2)
  - Red blood cells urine positive [Unknown]
  - Creatinine renal clearance decreased [Unknown]
